FAERS Safety Report 9441622 (Version 1)
Quarter: 2013Q3

REPORT INFORMATION
  Report Type: Spontaneous
  Country: BR (occurrence: BR)
  Receive Date: 20130806
  Receipt Date: 20130806
  Transmission Date: 20140515
  Serious: Yes (Other)
  Sender: FDA-Public Use
  Company Number: BR-AMGEN-BRASP2012008738

PATIENT
  Age: 63 Year
  Sex: Male
  Weight: 88 kg

DRUGS (4)
  1. ENBREL [Suspect]
     Indication: PSORIATIC ARTHROPATHY
     Dosage: 50 MG, ONCE WEEKLY
     Route: 058
     Dates: start: 20081201
  2. ENBREL [Suspect]
     Dosage: 50 MG, QWK
     Route: 065
     Dates: start: 201301
  3. CAPTOPRIL [Concomitant]
     Indication: HYPERTENSION
     Dosage: 25 MG, UNK
  4. DIURETICS [Concomitant]
     Dosage: UNK

REACTIONS (6)
  - Blood creatinine increased [Unknown]
  - Blood urea increased [Unknown]
  - Diabetes mellitus [Unknown]
  - Hypertension [Unknown]
  - Weight increased [Unknown]
  - Drug ineffective [Unknown]
